FAERS Safety Report 7565364-9 (Version None)
Quarter: 2011Q2

REPORT INFORMATION
  Report Type: 
  Country: None (occurrence: None)
  Receive Date: 20110623
  Receipt Date: 20110615
  Transmission Date: 20111010
  Serious: No
  Sender: FDA-Public Use
  Company Number: US-BIOGENIDEC-2010BI039127

PATIENT
  Age: 45 Year
  Sex: Female

DRUGS (2)
  1. TYSABRI [Suspect]
     Indication: MULTIPLE SCLEROSIS
     Route: 042
     Dates: start: 20050113, end: 20050210
  2. TYSABRI [Suspect]
     Route: 042
     Dates: start: 20091116

REACTIONS (3)
  - MUSCULOSKELETAL CHEST PAIN [None]
  - SYNCOPE [None]
  - HEPATIC ENZYME INCREASED [None]
